FAERS Safety Report 8943782 (Version 1)
Quarter: 2012Q4

REPORT INFORMATION
  Report Type: 
  Country: GB (occurrence: GB)
  Receive Date: 20121203
  Receipt Date: 20121203
  Transmission Date: 20130627
  Serious: Yes (Other)
  Sender: FDA-Public Use
  Company Number: GB-GLAXOSMITHKLINE-B0847511A

PATIENT
  Sex: Female

DRUGS (2)
  1. TROBALT [Suspect]
     Indication: EPILEPSY
     Dosage: 50MG Per day
     Route: 065
     Dates: end: 20121122
  2. ANTI-EPILEPTIC MEDICATION [Concomitant]

REACTIONS (2)
  - Urinary retention [Unknown]
  - Urinary incontinence [Unknown]
